FAERS Safety Report 6166752-8 (Version None)
Quarter: 2009Q2

REPORT INFORMATION
  Report Type: 
  Country: None (occurrence: None)
  Receive Date: 20090424
  Receipt Date: 20090413
  Transmission Date: 20091009
  Serious: Yes (Hospitalization)
  Sender: FDA-Public Use
  Company Number: JP-PFIZER INC-2009185681

PATIENT

DRUGS (9)
  1. MYCOBUTIN [Suspect]
     Indication: MYCOBACTERIUM AVIUM COMPLEX INFECTION
     Dosage: 150 MG, 1X/DAY
     Route: 048
     Dates: start: 20090219, end: 20090308
  2. MYCOBUTIN [Suspect]
  3. MYCOBUTIN [Suspect]
     Indication: MYCOBACTERIAL INFECTION
  4. BIOFERMIN R [Concomitant]
     Dosage: 3 G, 1X/DAY
     Route: 048
     Dates: start: 20090219, end: 20090101
  5. MUCOSTA [Concomitant]
     Dosage: 300 MG, 1X/DAY
     Route: 048
     Dates: start: 20090219, end: 20090101
  6. TOCLASE [Concomitant]
     Dosage: 90 MG, 1X/DAY
     Route: 048
     Dates: start: 20090219, end: 20090101
  7. CLARITH [Concomitant]
     Dosage: 400 MG, 1X/DAY
     Route: 048
     Dates: start: 20090219, end: 20090101
  8. ETHAMBUTOL HCL [Concomitant]
     Dosage: 125 MG, 1X/DAY
     Dates: start: 20090219, end: 20090101
  9. RIFAMPICIN [Concomitant]
     Dosage: UNK
     Dates: start: 20060317, end: 20090218

REACTIONS (2)
  - DECREASED APPETITE [None]
  - PYREXIA [None]
